FAERS Safety Report 21510219 (Version 1)
Quarter: 2022Q4

REPORT INFORMATION
  Report Type: Spontaneous
  Country: CN (occurrence: None)
  Receive Date: 20221026
  Receipt Date: 20221026
  Transmission Date: 20230113
  Serious: Yes (Other)
  Sender: FDA-Public Use
  Company Number: CN-Eisai Medical Research-EC-2022-126354

PATIENT
  Age: 59 Year
  Sex: Female
  Weight: 52 kg

DRUGS (8)
  1. RABEPRAZOLE [Suspect]
     Active Substance: RABEPRAZOLE
     Indication: Helicobacter infection
     Route: 048
     Dates: start: 20221012, end: 20221013
  2. RABEPRAZOLE [Suspect]
     Active Substance: RABEPRAZOLE
     Indication: Chronic gastritis
  3. DOXYCYCLINE HYDROCHLORIDE [Suspect]
     Active Substance: DOXYCYCLINE HYDROCHLORIDE
     Indication: Helicobacter infection
     Route: 048
     Dates: start: 20221012, end: 20221013
  4. DOXYCYCLINE HYDROCHLORIDE [Suspect]
     Active Substance: DOXYCYCLINE HYDROCHLORIDE
     Indication: Chronic gastritis
  5. AMOXICILLIN [Suspect]
     Active Substance: AMOXICILLIN
     Indication: Helicobacter infection
     Route: 048
     Dates: start: 20221012, end: 20221013
  6. AMOXICILLIN [Suspect]
     Active Substance: AMOXICILLIN
     Indication: Chronic gastritis
  7. BISMUTH [Concomitant]
     Active Substance: BISMUTH
     Indication: Helicobacter infection
     Route: 048
     Dates: start: 20221012, end: 20221013
  8. BISMUTH [Concomitant]
     Active Substance: BISMUTH
     Indication: Chronic gastritis

REACTIONS (3)
  - Gastrooesophageal reflux disease [Unknown]
  - Nausea [Unknown]
  - Drug eruption [Unknown]

NARRATIVE: CASE EVENT DATE: 20221013
